FAERS Safety Report 6662351-X (Version None)
Quarter: 2010Q1

REPORT INFORMATION
  Report Type: 
  Country: None (occurrence: None)
  Receive Date: 20100331
  Receipt Date: 20091112
  Transmission Date: 20100710
  Serious: No
  Sender: FDA-Public Use
  Company Number: US-ABBOTT-09P-163-0609177-00

PATIENT
  Sex: Female
  Weight: 63.56 kg

DRUGS (3)
  1. LUPRON DEPOT [Suspect]
     Indication: DYSPAREUNIA
     Dates: start: 20091022
  2. IBUPROFEN [Concomitant]
     Indication: MIGRAINE
  3. UNKNOWN INHALER [Concomitant]
     Indication: ASTHMA

REACTIONS (1)
  - HUNGER [None]
